FAERS Safety Report 6335684-4 (Version None)
Quarter: 2009Q3

REPORT INFORMATION
  Report Type: 
  Country: None (occurrence: None)
  Receive Date: 20090828
  Receipt Date: 20090817
  Transmission Date: 20100115
  Serious: Yes (Other)
  Sender: FDA-Public Use
  Company Number: 237660K09USA

PATIENT
  Age: 35 Year
  Sex: Male

DRUGS (1)
  1. REBIF [Suspect]
     Indication: MULTIPLE SCLEROSIS
     Dosage: 44 MCG, 3 IN 1 WEEKS, SUBCUTANEOUS
     Route: 058
     Dates: start: 20090310

REACTIONS (6)
  - FALL [None]
  - HEAD INJURY [None]
  - HIP FRACTURE [None]
  - LOSS OF CONSCIOUSNESS [None]
  - MIGRAINE [None]
  - PELVIC FRACTURE [None]
